FAERS Safety Report 4647418-X (Version None)
Quarter: 2005Q2

REPORT INFORMATION
  Report Type: 
  Country: None (occurrence: None)
  Receive Date: 20050428
  Receipt Date: 20040331
  Transmission Date: 20051028
  Serious: Yes (Hospitalization, Other)
  Sender: FDA-Public Use
  Company Number: BE-JNJFOC-20040400021

PATIENT
  Age: 60 Year
  Sex: Female

DRUGS (10)
  1. PROPULSID [Suspect]
     Indication: DIABETIC GASTROPARESIS
     Route: 049
  2. INSULIN [Concomitant]
     Route: 065
  3. CARDIOASPIRIN [Concomitant]
     Indication: DRUG USE FOR UNKNOWN INDICATION
     Route: 049
  4. ELTHYRONE [Concomitant]
     Indication: HYPOTHYROIDISM
     Route: 049
  5. TENORMIN [Concomitant]
     Indication: HYPERTENSION
     Route: 049
  6. VENORUTON [Concomitant]
     Indication: VENOUS INSUFFICIENCY
     Route: 049
  7. BETASERS [Concomitant]
     Route: 049
  8. CALCIUM VIT D [Concomitant]
     Route: 049
  9. CALCIUM VIT D [Concomitant]
     Route: 049
  10. CALCIUM VIT D [Concomitant]
     Indication: OSTEOPOROSIS
     Route: 049

REACTIONS (2)
  - SKIN GRAFT [None]
  - VARICOSE ULCERATION [None]
